FAERS Safety Report 9165661 (Version 1)
Quarter: 2013Q1

REPORT INFORMATION
  Report Type: Spontaneous
  Country: US (occurrence: US)
  Receive Date: 20130315
  Receipt Date: 20130315
  Transmission Date: 20140127
  Serious: No
  Sender: FDA-Public Use
  Company Number: US-PFIZER INC-2013085902

PATIENT
  Sex: Female
  Weight: 71.66 kg

DRUGS (4)
  1. PREDNISONE [Suspect]
     Indication: HORMONE REPLACEMENT THERAPY
     Dosage: UNK,1X/DAY
     Dates: start: 2012
  2. HYDROCORTISONE ACETATE [Suspect]
     Indication: HORMONE REPLACEMENT THERAPY
     Dosage: UNK
     Dates: start: 2012
  3. PREMARIN [Concomitant]
     Indication: HORMONE REPLACEMENT THERAPY
     Dosage: 0.3 MG, 1X/DAY
     Route: 048
  4. SYNTHROID [Concomitant]
     Indication: HORMONE REPLACEMENT THERAPY
     Dosage: 75 UG, 5X/WEEK
     Route: 048

REACTIONS (1)
  - Weight increased [Not Recovered/Not Resolved]
